FAERS Safety Report 4843715-3 (Version None)
Quarter: 2005Q4

REPORT INFORMATION
  Report Type: 
  Country: None (occurrence: None)
  Receive Date: 20051129
  Receipt Date: 20051116
  Transmission Date: 20060501
  Serious: Yes (Hospitalization, Other)
  Sender: FDA-Public Use
  Company Number: JP200511001430

PATIENT
  Age: 47 Year
  Sex: Male

DRUGS (2)
  1. OLANZAPINE [Suspect]
     Dosage: 15 MG DAILY (1/D)
  2. RISPERIDONE [Concomitant]

REACTIONS (13)
  - CATATONIA [None]
  - CATHETER SEPSIS [None]
  - DECUBITUS ULCER [None]
  - HAEMATEMESIS [None]
  - HEPATIC FUNCTION ABNORMAL [None]
  - HYPOPROTEINAEMIA [None]
  - LIVER DISORDER [None]
  - NEUROLEPTIC MALIGNANT SYNDROME [None]
  - PNEUMONIA ASPIRATION [None]
  - STAPHYLOCOCCAL INFECTION [None]
  - STUPOR [None]
  - THERAPY NON-RESPONDER [None]
  - URINARY TRACT INFECTION [None]
